FAERS Safety Report 15474111 (Version 1)
Quarter: 2018Q4

REPORT INFORMATION
  Report Type: Report from Study
  Country: DE (occurrence: DE)
  Receive Date: 20181008
  Receipt Date: 20181008
  Transmission Date: 20190205
  Serious: Yes (Other)
  Sender: FDA-Public Use
  Company Number: DE-SA-200120873DE

PATIENT
  Age: 79 Year
  Sex: Female
  Weight: 67 kg

DRUGS (24)
  1. RANITIDINE HYDROCHLORIDE. [Suspect]
     Active Substance: RANITIDINE HYDROCHLORIDE
     Dosage: UNK UNK,QD
     Route: 048
     Dates: start: 20000225, end: 20000227
  2. PHENYTOIN. [Suspect]
     Active Substance: PHENYTOIN
     Indication: SEIZURE
     Dosage: UNK UNK,UNK
     Route: 042
     Dates: start: 20000225, end: 20000225
  3. TRAMADOL HYDROCHLORIDE. [Suspect]
     Active Substance: TRAMADOL HYDROCHLORIDE
     Dosage: DOSE UNIT: 20 DROP
     Route: 048
     Dates: start: 20000223, end: 20000223
  4. ISOSORBIDE MONONITRATE. [Suspect]
     Active Substance: ISOSORBIDE MONONITRATE
     Indication: CORONARY ARTERY DISEASE
     Dosage: 1 DF,QD
     Route: 048
     Dates: start: 20000218, end: 20000224
  5. FUROSEMIDE. [Suspect]
     Active Substance: FUROSEMIDE
     Indication: OEDEMA
     Dosage: 40 MG,QD
     Route: 048
     Dates: start: 20000225, end: 20000227
  6. RANITIDINE HYDROCHLORIDE. [Suspect]
     Active Substance: RANITIDINE HYDROCHLORIDE
     Indication: GASTRIC ULCER
     Dosage: 300 MG
     Route: 048
     Dates: start: 20000218, end: 20000224
  7. PHENYTOIN. [Suspect]
     Active Substance: PHENYTOIN
     Dosage: UNK UNK,UNK
     Route: 042
     Dates: start: 20000226, end: 20000226
  8. COTRIMOXAZOLE [Suspect]
     Active Substance: SULFAMETHOXAZOLE\TRIMETHOPRIM
     Indication: CYSTITIS
  9. CLONAZEPAM. [Suspect]
     Active Substance: CLONAZEPAM
     Indication: SEIZURE
     Dosage: 1 MG,QD
     Route: 042
     Dates: start: 20000224, end: 20000224
  10. TRAMADOL HYDROCHLORIDE. [Suspect]
     Active Substance: TRAMADOL HYDROCHLORIDE
     Indication: PAIN
     Dosage: DOSE UNIT: 20 DROP  EAR EYE NOSE DROP SOLUTION
     Route: 048
     Dates: start: 20000218, end: 20000218
  11. TRAMADOL HYDROCHLORIDE. [Suspect]
     Active Substance: TRAMADOL HYDROCHLORIDE
     Dosage: DOSE UNIT: 20 DROP
     Route: 048
     Dates: start: 20000221, end: 20000221
  12. CARBAMAZEPINE. [Suspect]
     Active Substance: CARBAMAZEPINE
     Indication: SEIZURE
     Dosage: 600 MG,QD
     Route: 048
     Dates: start: 20000125, end: 20000224
  13. FUROSEMIDE. [Suspect]
     Active Substance: FUROSEMIDE
     Indication: CORONARY ARTERY DISEASE
     Dosage: UNK
     Route: 048
     Dates: start: 20000218, end: 20000224
  14. PHENYTOIN. [Suspect]
     Active Substance: PHENYTOIN
     Dosage: UNK UNK,UNK
     Route: 048
     Dates: start: 20000227, end: 20000227
  15. AMLODIPINE [Suspect]
     Active Substance: AMLODIPINE BESYLATE
     Indication: CORONARY ARTERY DISEASE
     Dosage: 5 MG,QD
     Route: 048
     Dates: start: 20000130, end: 20000220
  16. NORVASC [Concomitant]
     Active Substance: AMLODIPINE BESYLATE
     Indication: CORONARY ARTERY DISEASE
     Dosage: UNK UNK,QD
     Route: 048
     Dates: start: 20000130, end: 20000227
  17. PHENYTOIN. [Suspect]
     Active Substance: PHENYTOIN
     Dosage: UNK UNK,UNK
     Route: 042
     Dates: start: 20000226, end: 20000226
  18. COTRIMOXAZOLE [Suspect]
     Active Substance: SULFAMETHOXAZOLE\TRIMETHOPRIM
     Indication: URINARY TRACT INFECTION
     Dosage: 2 DF,QD
     Route: 048
     Dates: start: 20000226, end: 20000227
  19. BEN-U-RON [Concomitant]
     Active Substance: ACETAMINOPHEN
     Indication: PAIN
     Dosage: 1 DF,QD
     Route: 054
     Dates: start: 20000226, end: 20000226
  20. ACETYLSALICYLIC ACID [Suspect]
     Active Substance: ASPIRIN
     Indication: CORONARY ARTERY DISEASE
     Dosage: 100 MG,QD
     Route: 048
     Dates: start: 20000130, end: 20000227
  21. SULFAMETHOXAZOLE/TRIMETHOPRIM [Suspect]
     Active Substance: SULFAMETHOXAZOLE\TRIMETHOPRIM
     Indication: CYSTITIS
     Dosage: 2 DF, QD
     Route: 048
     Dates: start: 20000226
  22. PHENOBARBITAL. [Suspect]
     Active Substance: PHENOBARBITAL
     Indication: SEIZURE
     Dosage: UNK UNK,UNK
     Route: 030
     Dates: start: 20000225, end: 20000227
  23. ISOSORBIDE DINITRATE. [Suspect]
     Active Substance: ISOSORBIDE DINITRATE
     Indication: CORONARY ARTERY DISEASE
     Dosage: 1 DF,QD
     Route: 048
     Dates: start: 20000130, end: 20000218
  24. DIAZEPAM. [Suspect]
     Active Substance: DIAZEPAM
     Indication: SEIZURE
     Dosage: 5 MG,QD
     Route: 042
     Dates: start: 20000218, end: 20000225

REACTIONS (9)
  - Lip erosion [Recovered/Resolved]
  - Erythema [Recovered/Resolved]
  - Blister [Recovered/Resolved]
  - Mucosal erosion [Recovered/Resolved]
  - Rash macular [Recovered/Resolved]
  - Eyelid oedema [Recovered/Resolved]
  - Stevens-Johnson syndrome [Recovering/Resolving]
  - Conjunctivitis [Recovered/Resolved]
  - Pruritus generalised [Recovered/Resolved]

NARRATIVE: CASE EVENT DATE: 20000227
